FAERS Safety Report 7266954-3 (Version None)
Quarter: 2011Q1

REPORT INFORMATION
  Report Type: 
  Country: None (occurrence: None)
  Receive Date: 20110119
  Receipt Date: 20100616
  Transmission Date: 20110831
  Serious: Yes (Life-Threatening, Hospitalization)
  Sender: FDA-Public Use
  Company Number: 2009SP043165

PATIENT
  Age: 58 Year
  Sex: Female

DRUGS (8)
  1. SERTRALINE HYDROCHLORIDE [Concomitant]
  2. PURSENNID (PURSENNID) [Suspect]
     Indication: CONSTIPATION
     Dosage: 24 MG, PO
     Route: 048
     Dates: start: 20091208, end: 20091223
  3. MAGMIT [Concomitant]
  4. REMERON [Suspect]
     Indication: DEPRESSION
     Dosage: 15 MG, QD, PO; 30 MG QD, PO; 45 MG QD, PO
     Route: 048
     Dates: start: 20091022
  5. REMERON [Suspect]
     Indication: DEPRESSION
     Dosage: 15 MG, QD, PO; 30 MG QD, PO; 45 MG QD, PO
     Route: 048
     Dates: start: 20091202
  6. REMERON [Suspect]
     Indication: DEPRESSION
     Dosage: 15 MG, QD, PO; 30 MG QD, PO; 45 MG QD, PO
     Route: 048
     Dates: start: 20091111
  7. VITAMEDIN [Concomitant]
  8. SEROQUEL [Concomitant]

REACTIONS (9)
  - ABDOMINAL DISCOMFORT [None]
  - NORMOCHROMIC NORMOCYTIC ANAEMIA [None]
  - GASTROINTESTINAL HAEMORRHAGE [None]
  - REFUSAL OF TREATMENT BY PATIENT [None]
  - HYPOKALAEMIA [None]
  - ENDOCRINE DISORDER [None]
  - CEREBRAL ATROPHY [None]
  - CONSTIPATION [None]
  - DELUSION [None]
